FAERS Safety Report 6959224-1 (Version None)
Quarter: 2010Q3

REPORT INFORMATION
  Report Type: 
  Country: None (occurrence: None)
  Receive Date: 20100831
  Receipt Date: 20100820
  Transmission Date: 20110219
  Serious: Yes (Other)
  Sender: FDA-Public Use
  Company Number: US-PFIZER INC-2010106106

PATIENT
  Sex: Male
  Weight: 96.599 kg

DRUGS (2)
  1. CHANTIX [Suspect]
     Indication: SMOKING CESSATION THERAPY
     Dosage: 0.5 MG, 1X/DAY
     Route: 048
     Dates: start: 20100610, end: 20100601
  2. CHANTIX [Suspect]
     Dosage: 1 MG, 2X/DAY
     Route: 048
     Dates: start: 20100601

REACTIONS (4)
  - ABDOMINAL DISCOMFORT [None]
  - HEADACHE [None]
  - NAUSEA [None]
  - NERVOUSNESS [None]
